FAERS Safety Report 17901601 (Version 2)
Quarter: 2020Q3

REPORT INFORMATION
  Report Type: Spontaneous
  Country: CA (occurrence: CA)
  Receive Date: 20200616
  Receipt Date: 20200702
  Transmission Date: 20201103
  Serious: Yes (Other)
  Sender: FDA-Public Use
  Company Number: CA-SHIRE-CA202019199

PATIENT

DRUGS (2)
  1. GAMMAGARD LIQUID [Suspect]
     Active Substance: HUMAN IMMUNOGLOBULIN G
     Indication: PRODUCT USED FOR UNKNOWN INDICATION
     Dosage: 15 GRAM, 2X/DAY:BID
     Route: 042
  2. GAMMAGARD LIQUID [Suspect]
     Active Substance: HUMAN IMMUNOGLOBULIN G
     Dosage: 15 GRAM, 2X/DAY:BID
     Route: 042

REACTIONS (5)
  - Guillain-Barre syndrome [Unknown]
  - Transfusion reaction [Unknown]
  - Nausea [Unknown]
  - Chills [Unknown]
  - Ataxia [Unknown]

NARRATIVE: CASE EVENT DATE: 20200515
